FAERS Safety Report 19844164 (Version 1)
Quarter: 2021Q3

REPORT INFORMATION
  Report Type: Spontaneous
  Country: FR (occurrence: FR)
  Receive Date: 20210916
  Receipt Date: 20210916
  Transmission Date: 20211014
  Serious: Yes (Hospitalization)
  Sender: FDA-Public Use
  Company Number: FR-009507513-2109FRA002824

PATIENT
  Age: 62 Year
  Sex: Female
  Weight: 71 kg

DRUGS (2)
  1. PEMBROLIZUMAB. [Suspect]
     Active Substance: PEMBROLIZUMAB
     Indication: SMALL CELL LUNG CANCER METASTATIC
     Dosage: 650 MG/3 WEEKS
     Route: 042
     Dates: start: 20200305, end: 20210127
  2. ALIMTA [Suspect]
     Active Substance: PEMETREXED DISODIUM
     Indication: SMALL CELL LUNG CANCER METASTATIC
     Dosage: 650 MG/3 WEEKS
     Route: 042
     Dates: start: 20200305, end: 20210127

REACTIONS (2)
  - Tubulointerstitial nephritis [Not Recovered/Not Resolved]
  - Acute kidney injury [Not Recovered/Not Resolved]

NARRATIVE: CASE EVENT DATE: 202102
